FAERS Safety Report 7256307-6 (Version None)
Quarter: 2011Q1

REPORT INFORMATION
  Report Type: 
  Country: None (occurrence: None)
  Receive Date: 20110129
  Receipt Date: 20100601
  Transmission Date: 20110831
  Serious: Yes (Other)
  Sender: FDA-Public Use
  Company Number: US-ABBOTT-10P-163-0648978-00

PATIENT
  Sex: Female
  Weight: 68.1 kg

DRUGS (5)
  1. SYNTHROID [Concomitant]
     Indication: HYPOTHYROIDISM
  2. HUMIRA [Suspect]
     Indication: PSORIASIS
     Route: 058
     Dates: start: 20100116, end: 20100501
  3. NEXIUM [Concomitant]
     Indication: GASTROOESOPHAGEAL REFLUX DISEASE
  4. TOPAMAX [Concomitant]
     Indication: MIGRAINE
  5. HUMIRA [Suspect]
     Indication: PSORIATIC ARTHROPATHY

REACTIONS (6)
  - DRUG INEFFECTIVE [None]
  - TRIGGER FINGER [None]
  - BONE PAIN [None]
  - INFECTION [None]
  - PILONIDAL CYST [None]
  - PSORIATIC ARTHROPATHY [None]
